FAERS Safety Report 25944520 (Version 1)
Quarter: 2025Q4

REPORT INFORMATION
  Report Type: Spontaneous
  Country: US (occurrence: US)
  Receive Date: 20251021
  Receipt Date: 20251021
  Transmission Date: 20260118
  Serious: Yes (Other)
  Sender: CHEPLAPHARM
  Company Number: None

PATIENT
  Age: 8 Decade
  Sex: Female

DRUGS (27)
  1. QUETIAPINE [Suspect]
     Active Substance: QUETIAPINE
     Indication: Anxiety
     Dosage: DAILY DOSE: 25 MILLIGRAM
     Route: 048
  2. QUETIAPINE [Suspect]
     Active Substance: QUETIAPINE
     Indication: Insomnia
     Dosage: DAILY DOSE: 25 MILLIGRAM
     Route: 048
  3. QUETIAPINE [Suspect]
     Active Substance: QUETIAPINE
     Indication: Hallucination
     Dosage: DAILY DOSE: 25 MILLIGRAM
     Route: 048
  4. QUETIAPINE [Suspect]
     Active Substance: QUETIAPINE
     Indication: Circadian rhythm sleep disorder
     Dosage: DAILY DOSE: 25 MILLIGRAM
     Route: 048
  5. QUETIAPINE [Suspect]
     Active Substance: QUETIAPINE
     Indication: Anxiety
     Dosage: 25 MG TWO TIMES PER DAY; RESTARTED?DAILY DOSE: 50 MILLIGRAM
     Route: 048
  6. QUETIAPINE [Suspect]
     Active Substance: QUETIAPINE
     Indication: Insomnia
     Dosage: 25 MG TWO TIMES PER DAY; RESTARTED?DAILY DOSE: 50 MILLIGRAM
     Route: 048
  7. QUETIAPINE [Suspect]
     Active Substance: QUETIAPINE
     Indication: Hallucination
     Dosage: 25 MG TWO TIMES PER DAY; RESTARTED?DAILY DOSE: 50 MILLIGRAM
     Route: 048
  8. QUETIAPINE [Suspect]
     Active Substance: QUETIAPINE
     Indication: Circadian rhythm sleep disorder
     Dosage: 25 MG TWO TIMES PER DAY; RESTARTED?DAILY DOSE: 50 MILLIGRAM
     Route: 048
  9. QUETIAPINE [Suspect]
     Active Substance: QUETIAPINE
     Indication: Anxiety
     Dosage: RESTARTED AT 12.5 MG IN THE MORNING AND 75 MG AT NIGHT
     Route: 048
  10. QUETIAPINE [Suspect]
     Active Substance: QUETIAPINE
     Indication: Insomnia
     Dosage: RESTARTED AT 12.5 MG IN THE MORNING AND 75 MG AT NIGHT
     Route: 048
  11. QUETIAPINE [Suspect]
     Active Substance: QUETIAPINE
     Indication: Hallucination
     Dosage: RESTARTED AT 12.5 MG IN THE MORNING AND 75 MG AT NIGHT
     Route: 048
  12. QUETIAPINE [Suspect]
     Active Substance: QUETIAPINE
     Indication: Circadian rhythm sleep disorder
     Dosage: RESTARTED AT 12.5 MG IN THE MORNING AND 75 MG AT NIGHT
     Route: 048
  13. SERTRALINE [Suspect]
     Active Substance: SERTRALINE HYDROCHLORIDE
     Indication: Apathy
     Dosage: DAILY DOSE: 12.5 MILLIGRAM
  14. Thyroid Pork Armour [Concomitant]
     Indication: Hypothyroidism
     Dosage: DAILY DOSE: 75 MILLIGRAM
  15. ALPRAZOLAM [Concomitant]
     Active Substance: ALPRAZOLAM
     Dosage: 0.5 MG TWO TIMES PER DAY AS NEEDED (PRN)?DAILY DOSE: 1 MILLIGRAM
  16. CHOLECALCIFEROL [Concomitant]
     Active Substance: CHOLECALCIFEROL
     Dosage: DAILY
  17. CYCLOSPORINE [Concomitant]
     Active Substance: CYCLOSPORINE
  18. ESTRADIOL [Concomitant]
     Active Substance: ESTRADIOL
  19. LYSINE [Concomitant]
     Active Substance: LYSINE
  20. METOPROLOL SUCCINATE [Concomitant]
     Active Substance: METOPROLOL SUCCINATE
  21. NITROGLYCERIN [Concomitant]
     Active Substance: NITROGLYCERIN
     Route: 060
  22. ROSUVASTATIN [Concomitant]
     Active Substance: ROSUVASTATIN
  23. VIBEGRON [Concomitant]
     Active Substance: VIBEGRON
  24. METHYLPREDNISOLONE [Concomitant]
     Active Substance: METHYLPREDNISOLONE
     Indication: Hashimoto^s encephalopathy
     Dosage: DAILY DOSE: 1 GRAM
     Route: 042
  25. METHYLPREDNISOLONE [Concomitant]
     Active Substance: METHYLPREDNISOLONE
     Indication: Circadian rhythm sleep disorder
     Dosage: DAILY DOSE: 1 GRAM
     Route: 042
  26. PREDNISONE [Concomitant]
     Active Substance: PREDNISONE
     Indication: Hashimoto^s encephalopathy
     Dosage: 13- WEEK ORAL PREDNISONE TAPER; CONSISTED OF 2 WEEKS OF 60 MG, 2 WEEKS OF 40 MG, 2 WEEKS OF 20 MG...
     Route: 048
  27. LORAZEPAM [Concomitant]
     Active Substance: LORAZEPAM
     Indication: Agitation
     Dosage: DAILY DOSE: 1.5 MILLIGRAM
     Route: 042

REACTIONS (1)
  - Hallucination, visual [Not Recovered/Not Resolved]
